FAERS Safety Report 21257581 (Version 2)
Quarter: 2022Q3

REPORT INFORMATION
  Report Type: Spontaneous
  Country: FR (occurrence: FR)
  Receive Date: 20220826
  Receipt Date: 20220905
  Transmission Date: 20221027
  Serious: Yes (Death, Other)
  Sender: FDA-Public Use
  Company Number: FR-AUROBINDO-AUR-APL-2022-033828

PATIENT
  Sex: Male

DRUGS (13)
  1. PREDNISONE [Suspect]
     Active Substance: PREDNISONE
     Indication: Cholangitis sclerosing
     Dosage: 5 MILLIGRAM, DAILY
     Route: 065
  2. PREDNISONE [Suspect]
     Active Substance: PREDNISONE
     Indication: Immunosuppression
  3. PREDNISONE [Suspect]
     Active Substance: PREDNISONE
     Indication: Pouchitis
  4. URSODIOL [Suspect]
     Active Substance: URSODIOL
     Indication: Cholangitis sclerosing
     Dosage: LOW DOSE
     Route: 065
     Dates: start: 2016
  5. URSODIOL [Suspect]
     Active Substance: URSODIOL
     Indication: Pouchitis
  6. INFLIXIMAB [Suspect]
     Active Substance: INFLIXIMAB
     Indication: Cholangitis sclerosing
     Dosage: 5 MILLIGRAM/KILOGRAM (2 CYCLES)
     Route: 065
     Dates: start: 2016
  7. INFLIXIMAB [Suspect]
     Active Substance: INFLIXIMAB
     Indication: Pouchitis
  8. MYCOPHENOLATE MOFETIL [Suspect]
     Active Substance: MYCOPHENOLATE MOFETIL
     Indication: Cholangitis sclerosing
     Dosage: LOW DOSE
     Route: 065
     Dates: start: 2016
  9. MYCOPHENOLATE MOFETIL [Suspect]
     Active Substance: MYCOPHENOLATE MOFETIL
     Indication: Immunosuppression
  10. MYCOPHENOLATE MOFETIL [Suspect]
     Active Substance: MYCOPHENOLATE MOFETIL
     Indication: Pouchitis
  11. TACROLIMUS [Suspect]
     Active Substance: TACROLIMUS
     Indication: Cholangitis sclerosing
     Dosage: RESIDUAL LEVEL 3-8 NG/ML
     Route: 065
  12. TACROLIMUS [Suspect]
     Active Substance: TACROLIMUS
     Indication: Immunosuppression
  13. TACROLIMUS [Suspect]
     Active Substance: TACROLIMUS
     Indication: Pouchitis

REACTIONS (2)
  - Cholangiocarcinoma [Fatal]
  - Treatment failure [Unknown]
